FAERS Safety Report 4352225-1 (Version None)
Quarter: 2004Q2

REPORT INFORMATION
  Report Type: 
  Country: None (occurrence: None)
  Receive Date: 20040428
  Receipt Date: 20040414
  Transmission Date: 20050107
  Serious: Yes (Death, Disabling)
  Sender: FDA-Public Use
  Company Number: JP_040403005

PATIENT
  Age: 83 Year
  Sex: Male

DRUGS (8)
  1. VANCOMYCIN [Suspect]
     Indication: STAPHYLOCOCCAL INFECTION
     Dosage: 250 MG/2 DAY
     Dates: start: 20030228, end: 20030313
  2. STRONGER NEO-MINOPHAGEN C [Concomitant]
  3. PN TWIN [Concomitant]
  4. FAMOTIDINE [Concomitant]
  5. ELEMENMIC [Concomitant]
  6. MULTAMIN [Concomitant]
  7. SULPERAZON [Concomitant]
  8. KEITEN(CEFPIROME SULFATE) [Concomitant]

REACTIONS (2)
  - LIVER DISORDER [None]
  - PNEUMONIA [None]
